FAERS Safety Report 11061302 (Version 1)
Quarter: 2015Q2

REPORT INFORMATION
  Report Type: Spontaneous
  Country: US (occurrence: None)
  Receive Date: 20150423
  Receipt Date: 20150423
  Transmission Date: 20150821
  Serious: Yes (Hospitalization)
  Sender: FDA-Public Use
  Company Number: None

PATIENT
  Age: 90 Year
  Sex: Male
  Weight: 82.6 kg

DRUGS (7)
  1. XARELTO [Suspect]
     Active Substance: RIVAROXABAN
     Indication: ATRIAL FIBRILLATION
     Dosage: ABOUT 1 MONTH
     Route: 048
  2. XARELTO [Concomitant]
     Active Substance: RIVAROXABAN
  3. LIPITOR [Concomitant]
     Active Substance: ATORVASTATIN CALCIUM
  4. FLOMAX 0.4MG [Concomitant]
  5. NIFEDIPINE CR 30MG [Concomitant]
  6. SOTALOL 40MG [Concomitant]
  7. MULTIVITAMIN [Concomitant]
     Active Substance: VITAMINS

REACTIONS (3)
  - Rectal haemorrhage [None]
  - Gastrointestinal haemorrhage [None]
  - Haemorrhoids [None]

NARRATIVE: CASE EVENT DATE: 20150311
